FAERS Safety Report 8866083 (Version 2)
Quarter: 2015Q3

REPORT INFORMATION
  Report Type: Report from Study
  Country: US (occurrence: US)
  Receive Date: 20121025
  Receipt Date: 20150910
  Transmission Date: 20151125
  Serious: Yes (Other)
  Sender: FDA-Public Use
  Company Number: US-ROCHE-1135450

PATIENT
  Sex: Female

DRUGS (2)
  1. RAPTIVA [Suspect]
     Active Substance: EFALIZUMAB
     Indication: PUSTULAR PSORIASIS
     Route: 065
  2. RAPTIVA [Suspect]
     Active Substance: EFALIZUMAB
     Indication: PSORIASIS
     Route: 065

REACTIONS (6)
  - Tenderness [Unknown]
  - Pruritus [Unknown]
  - Skin exfoliation [Unknown]
  - Skin irritation [Unknown]
  - Pain [Unknown]
  - Psoriasis [Unknown]
